FAERS Safety Report 8335545-5 (Version None)
Quarter: 2012Q2

REPORT INFORMATION
  Report Type: 
  Country: None (occurrence: None)
  Receive Date: 20120503
  Receipt Date: 20120418
  Transmission Date: 20120825
  Serious: Yes (Other)
  Sender: FDA-Public Use
  Company Number: CHPA2012US009703

PATIENT
  Sex: Female

DRUGS (1)
  1. ACETAMINOPHEN, DIPHENHYDRAMINE CITRATE [Suspect]
     Dosage: 2 DF, QD
     Route: 048
     Dates: start: 19820101

REACTIONS (2)
  - INCORRECT DRUG ADMINISTRATION DURATION [None]
  - BLOOD COUNT ABNORMAL [None]
